FAERS Safety Report 9227468 (Version 4)
Quarter: 2014Q2

REPORT INFORMATION
  Report Type: Report from Study
  Country: CA (occurrence: CA)
  Receive Date: 20130412
  Receipt Date: 20140521
  Transmission Date: 20141212
  Serious: Yes (Other)
  Sender: FDA-Public Use
  Company Number: PHHY2013CA034712

PATIENT
  Age: 53 Year
  Sex: Female

DRUGS (3)
  1. GILENYA [Suspect]
     Indication: RELAPSING-REMITTING MULTIPLE SCLEROSIS
     Dosage: 0.5 MG, QD
     Route: 048
     Dates: start: 20110719
  2. BACLOFEN [Concomitant]
     Dates: start: 20131008
  3. ADALAT [Concomitant]

REACTIONS (3)
  - Cholelithiasis [Unknown]
  - Abdominal pain [Unknown]
  - Procedural haemorrhage [Unknown]
